FAERS Safety Report 4477247-1 (Version None)
Quarter: 2004Q4

REPORT INFORMATION
  Report Type: 
  Country: None (occurrence: None)
  Receive Date: 20041018
  Receipt Date: 20041005
  Transmission Date: 20050328
  Serious: Yes (Hospitalization)
  Sender: FDA-Public Use
  Company Number: FR-BRISTOL-MYERS SQUIBB COMPANY-12721890

PATIENT
  Age: 75 Year
  Sex: Male

DRUGS (6)
  1. MUCOMYST [Suspect]
     Indication: RESPIRATORY TRACT INFECTION
     Route: 048
     Dates: start: 20040201, end: 20040208
  2. ALDACTONE [Suspect]
     Route: 048
  3. FUROSEMIDE [Suspect]
     Route: 048
  4. CELEBREX [Suspect]
     Indication: BACK PAIN
     Route: 048
     Dates: start: 20030618, end: 20040215
  5. DI-ANTALVIC [Suspect]
     Indication: BACK PAIN
     Route: 048
     Dates: start: 20030618, end: 20040215
  6. ALFATIL [Suspect]
     Indication: RESPIRATORY TRACT INFECTION
     Route: 048
     Dates: start: 20040201, end: 20040208

REACTIONS (2)
  - ECZEMA [None]
  - PRURITUS [None]
